FAERS Safety Report 18914177 (Version 1)
Quarter: 2021Q1

REPORT INFORMATION
  Report Type: Spontaneous
  Country: US (occurrence: US)
  Receive Date: 20210218
  Receipt Date: 20210218
  Transmission Date: 20210420
  Serious: No
  Sender: FDA-Public Use
  Company Number: US-TEVA-2021-US-1872601

PATIENT
  Age: 70 Year
  Sex: Female

DRUGS (14)
  1. GABAPENTIN 300MG [Concomitant]
     Active Substance: GABAPENTIN
     Indication: NEUROPATHY PERIPHERAL
     Dosage: 900 MILLIGRAM DAILY;
     Route: 048
  2. HYDOXYZINE HCL 25MG [Concomitant]
     Indication: ANXIETY
     Dosage: 25 MILLIGRAM DAILY;
     Route: 048
  3. PRESERVISION AREDS 2 [Concomitant]
     Active Substance: MINERALS\VITAMINS
     Indication: NUTRITIONAL SUPPLEMENTATION
     Route: 048
  4. VENLAFAXINE HCL 75MG [Concomitant]
     Indication: MAJOR DEPRESSION
     Dosage: 75 MILLIGRAM DAILY; CAPSULE EXTENDED RELEASE 24 H
     Route: 048
  5. AUSTEDO [Suspect]
     Active Substance: DEUTETRABENAZINE
     Indication: TARDIVE DYSKINESIA
     Dosage: 24 MILLIGRAM DAILY; INCREASED DOSE 14 DAYS AGO (TAKING 1/2 6MG TABLET AND 1 9MG TABLET TO EQUAL 12MG
  6. OMEPRAZOLE 20MG [Concomitant]
     Active Substance: OMEPRAZOLE
     Indication: GASTROOESOPHAGEAL REFLUX DISEASE
     Dosage: 20 MILLIGRAM DAILY; CAPSULE DELAYED RELEASE
     Route: 048
  7. VITMAIN D (CHOLECALCIFEROL) 50 MCG (2000UI) [Concomitant]
     Indication: NUTRITIONAL SUPPLEMENTATION
     Dosage: 100 MICROGRAM DAILY;
     Route: 048
  8. COMPLETE SENIOR [Concomitant]
     Indication: NUTRITIONAL SUPPLEMENTATION
     Route: 048
  9. SIMVASTATIN 20 MG [Concomitant]
     Active Substance: SIMVASTATIN
     Indication: HYPERLIPIDAEMIA
     Dosage: 20 MILLIGRAM DAILY;
     Route: 048
  10. ASPIRIN 81MG [Concomitant]
     Active Substance: ASPIRIN
     Indication: CARDIOVASCULAR EVENT PROPHYLAXIS
     Dosage: 81 MILLIGRAM DAILY; DELAYED RELEASE TABLET
     Route: 048
  11. CALCIUM 1200 [Concomitant]
     Indication: NUTRITIONAL SUPPLEMENTATION
     Dosage: 1200 ?1000 ? MG ? UNIT
     Route: 048
  12. ESTRADIOL 0.5MG [Concomitant]
     Indication: MENOPAUSAL SYMPTOMS
     Route: 048
  13. EXCEDRIN EXTRA STRENGHT 250?250?65MG [Concomitant]
     Indication: PAIN
     Dosage: ONE TABLET AS NEEDED
     Route: 048
  14. ADVIL 200MG [Concomitant]
     Indication: PAIN
     Dosage: ONE TABLET AS NEEDED
     Route: 048

REACTIONS (6)
  - Wrong technique in product usage process [Unknown]
  - Feeling abnormal [Not Recovered/Not Resolved]
  - Loss of personal independence in daily activities [Not Recovered/Not Resolved]
  - Balance disorder [Not Recovered/Not Resolved]
  - Gait disturbance [Not Recovered/Not Resolved]
  - Condition aggravated [Not Recovered/Not Resolved]

NARRATIVE: CASE EVENT DATE: 2021
